FAERS Safety Report 12617523 (Version 1)
Quarter: 2016Q3

REPORT INFORMATION
  Report Type: Spontaneous
  Country: US (occurrence: None)
  Receive Date: 20160802
  Receipt Date: 20160802
  Transmission Date: 20161109
  Serious: Yes (Hospitalization, Other)
  Sender: FDA-Public Use
  Company Number: None

PATIENT
  Age: 30 Year
  Sex: Male
  Weight: 81.65 kg

DRUGS (1)
  1. HUMIRA [Suspect]
     Active Substance: ADALIMUMAB
     Indication: CROHN^S DISEASE
     Dates: start: 20131227

REACTIONS (5)
  - Groin infection [None]
  - Cellulitis [None]
  - Staphylococcus test positive [None]
  - Groin pain [None]
  - Local swelling [None]

NARRATIVE: CASE EVENT DATE: 20160512
